FAERS Safety Report 5543782-8 (Version None)
Quarter: 2007Q4

REPORT INFORMATION
  Report Type: 
  Country: None (occurrence: None)
  Receive Date: 20071210
  Receipt Date: 20071129
  Transmission Date: 20080405
  Serious: Yes (Hospitalization)
  Sender: FDA-Public Use
  Company Number: DE-ROXANE LABORATORIES, INC-2007-DE-06834GD

PATIENT
  Age: 39 Year
  Sex: Female

DRUGS (8)
  1. PARACETAMOL [Suspect]
     Indication: PYREXIA
  2. IBUPROFEN [Suspect]
     Indication: PYREXIA
  3. CLARITHROMYCIN [Suspect]
     Indication: ANTI-INFECTIVE THERAPY
  4. PENICILLIN [Suspect]
     Indication: ANTI-INFECTIVE THERAPY
     Route: 048
  5. CEFTRIAXON [Suspect]
     Indication: ANTI-INFECTIVE THERAPY
     Route: 042
  6. PIPERACILLIN AND TAZOBACTAM [Suspect]
     Indication: ANTI-INFECTIVE THERAPY
  7. ANTIRHEUMATICS [Concomitant]
  8. ANTIHISTAMINES [Concomitant]

REACTIONS (1)
  - ACUTE HEPATIC FAILURE [None]
